FAERS Safety Report 9167956 (Version 1)
Quarter: 2013Q1

REPORT INFORMATION
  Report Type: Spontaneous
  Country: US (occurrence: US)
  Receive Date: 20130318
  Receipt Date: 20130318
  Transmission Date: 20140127
  Serious: No
  Sender: FDA-Public Use
  Company Number: PHEH2013US006217

PATIENT
  Sex: Male
  Weight: 116.1 kg

DRUGS (10)
  1. TASIGNA [Suspect]
     Indication: CHRONIC MYELOID LEUKAEMIA
     Dosage: 2 DF, BID
     Route: 048
  2. BUPROPION [Concomitant]
     Dosage: 150 MG, UNK
  3. LIPITOR [Concomitant]
     Dosage: 10 MG, UNK
  4. PLAVIX [Concomitant]
     Dosage: 75 MG, UNK
  5. AVAPRO [Concomitant]
     Dosage: 150 MG, UNK
  6. SEROQUEL [Concomitant]
     Dosage: 100 MG, UNK
  7. SPRYCEL [Concomitant]
     Dosage: 100 MG, UNK
  8. ERGOCALCIFEROL [Concomitant]
     Dosage: 1000 U, UNK
  9. LANTUS [Concomitant]
     Dosage: 100/ML, UNK
  10. HUMALOG [Concomitant]
     Dosage: 100 /ML, UNK

REACTIONS (3)
  - Rash [Unknown]
  - Arthralgia [Unknown]
  - Myalgia [Unknown]
